FAERS Safety Report 23264710 (Version 1)
Quarter: 2023Q4

REPORT INFORMATION
  Report Type: Report from Study
  Country: CA (occurrence: CA)
  Receive Date: 20231206
  Receipt Date: 20231206
  Transmission Date: 20240109
  Serious: Yes (Other)
  Sender: FDA-Public Use
  Company Number: CA-JNJFOC-20210239941

PATIENT
  Age: 16 Year
  Sex: Female
  Weight: 61 kg

DRUGS (3)
  1. REMICADE [Suspect]
     Active Substance: INFLIXIMAB
     Indication: Crohn^s disease
     Dosage: 500 MG
     Route: 042
     Dates: start: 20210119
  2. REMICADE [Suspect]
     Active Substance: INFLIXIMAB
     Dosage: 10 MG/KG
     Route: 042
  3. IRON [FERROUS FUMARATE] [Concomitant]
     Indication: Product used for unknown indication
     Route: 065

REACTIONS (2)
  - Mineral supplementation [Unknown]
  - Off label use [Unknown]

NARRATIVE: CASE EVENT DATE: 20210119
